FAERS Safety Report 12688923 (Version 1)
Quarter: 2016Q3

REPORT INFORMATION
  Report Type: Spontaneous
  Country: US (occurrence: US)
  Receive Date: 20160825
  Receipt Date: 20160825
  Transmission Date: 20161109
  Serious: No
  Sender: FDA-Public Use
  Company Number: US-FRI-1000080277

PATIENT
  Sex: Female
  Weight: 61 kg

DRUGS (1)
  1. LEXAPRO [Suspect]
     Active Substance: ESCITALOPRAM OXALATE
     Dosage: 10MG
     Route: 048
     Dates: start: 201301, end: 201510

REACTIONS (4)
  - Withdrawal syndrome [Recovered/Resolved]
  - Libido decreased [Not Recovered/Not Resolved]
  - Hot flush [Recovered/Resolved]
  - Paraesthesia oral [Recovered/Resolved]

NARRATIVE: CASE EVENT DATE: 2013
